FAERS Safety Report 23915331 (Version 3)
Quarter: 2024Q3

REPORT INFORMATION
  Report Type: Spontaneous
  Country: US (occurrence: US)
  Receive Date: 20240529
  Receipt Date: 20240703
  Transmission Date: 20241017
  Serious: Yes (Other)
  Sender: AMGEN
  Company Number: US-AMGEN-HZN-2024-005805

PATIENT
  Sex: Female

DRUGS (2)
  1. TEPEZZA [Suspect]
     Active Substance: TEPROTUMUMAB-TRBW
     Indication: Product used for unknown indication
     Dosage: UNK, Q3WK
     Route: 042
     Dates: start: 202110
  2. TEPEZZA [Suspect]
     Active Substance: TEPROTUMUMAB-TRBW
     Dosage: UNK, Q3WK (EIGHT INFUSIONS TOTAL WITH ONE EVERY 3 WEEKS)
     Route: 042
     Dates: start: 202203, end: 202203

REACTIONS (2)
  - Endocrine ophthalmopathy [Unknown]
  - Deafness [Unknown]

NARRATIVE: CASE EVENT DATE: 20240101
